FAERS Safety Report 10050531 (Version 1)
Quarter: 2014Q2

REPORT INFORMATION
  Report Type: Spontaneous
  Country: US (occurrence: US)
  Receive Date: 20140401
  Receipt Date: 20140401
  Transmission Date: 20141212
  Serious: No
  Sender: FDA-Public Use
  Company Number: US-ASTRAZENECA-2013SE84588

PATIENT
  Age: 68 Year
  Sex: Female
  Weight: 81.6 kg

DRUGS (6)
  1. NEXIUM [Suspect]
     Indication: GASTROOESOPHAGEAL REFLUX DISEASE
     Route: 048
     Dates: start: 2003, end: 201308
  2. NEXIUM [Suspect]
     Indication: GASTROOESOPHAGEAL REFLUX DISEASE
     Dosage: GENERIC, 40 MG , ONCE DAILY
     Route: 065
  3. OMEPRAZOLE [Suspect]
     Indication: GASTROOESOPHAGEAL REFLUX DISEASE
     Route: 048
  4. PREVACID [Concomitant]
     Indication: DYSPEPSIA
     Dosage: UNKNOWN DAILY
     Route: 048
     Dates: start: 20131114
  5. ZANTAC [Concomitant]
     Indication: DYSPEPSIA
     Dosage: UNKNOWN DAILY
     Route: 048
     Dates: start: 20131113
  6. ROLAIDS [Concomitant]
     Indication: DYSPEPSIA
     Dosage: UNKNOWN PRN
     Route: 048

REACTIONS (7)
  - Diarrhoea [Unknown]
  - Dyspnoea [Not Recovered/Not Resolved]
  - Gastrooesophageal reflux disease [Not Recovered/Not Resolved]
  - Gastrooesophageal reflux disease [Unknown]
  - Intentional product misuse [Unknown]
  - Drug dose omission [Unknown]
  - Drug ineffective [Unknown]
